FAERS Safety Report 10499477 (Version 1)
Quarter: 2014Q4

REPORT INFORMATION
  Report Type: Spontaneous
  Country: US (occurrence: US)
  Receive Date: 20141006
  Receipt Date: 20141006
  Transmission Date: 20150528
  Serious: No
  Sender: FDA-Public Use
  Company Number: US-AMGEN INC.-USASP2014037768

PATIENT
  Age: 70 Year
  Sex: Female

DRUGS (5)
  1. ENSURE                             /07499801/ [Concomitant]
  2. METHIMAZOLE. [Concomitant]
     Active Substance: METHIMAZOLE
     Indication: HYPOTHYROIDISM
     Dosage: UNK
     Dates: start: 201304
  3. DIGOXIN. [Concomitant]
     Active Substance: DIGOXIN
  4. PROLIA [Suspect]
     Active Substance: DENOSUMAB
     Indication: OSTEOPOROSIS POSTMENOPAUSAL
     Dosage: UNK
     Route: 065
     Dates: start: 20130610
  5. PROPRANOLOL [Concomitant]
     Active Substance: PROPRANOLOL\PROPRANOLOL HYDROCHLORIDE
     Dosage: 40 MG, UNK

REACTIONS (4)
  - Lip dry [Unknown]
  - Hypoaesthesia oral [Not Recovered/Not Resolved]
  - Lip swelling [Unknown]
  - Lip pain [Not Recovered/Not Resolved]

NARRATIVE: CASE EVENT DATE: 20131211
